FAERS Safety Report 6307673-7 (Version None)
Quarter: 2009Q3

REPORT INFORMATION
  Report Type: 
  Country: None (occurrence: None)
  Receive Date: 20090813
  Receipt Date: 20090806
  Transmission Date: 20100115
  Serious: Yes (Hospitalization, Other)
  Sender: FDA-Public Use
  Company Number: PHEH2009US08918

PATIENT
  Sex: Female

DRUGS (5)
  1. RECLAST [Suspect]
     Indication: OSTEOPOROSIS
     Dosage: UNK, ONCE/SINGLE
     Dates: start: 20090601, end: 20090601
  2. DIOVAN [Concomitant]
     Indication: HYPERTENSION
     Dosage: 320/25 MG, DAILY
  3. METFORMIN [Concomitant]
     Indication: DIABETES MELLITUS
     Dosage: UNK, DAILY
  4. ZANTAC [Concomitant]
     Indication: GASTROOESOPHAGEAL REFLUX DISEASE
     Dosage: UNK, UNK
  5. MOTRIN [Concomitant]
     Dosage: UNK, UNK

REACTIONS (5)
  - BACK PAIN [None]
  - CHEST PAIN [None]
  - DYSPNOEA [None]
  - HYPERTENSION [None]
  - PULMONARY EMBOLISM [None]
